FAERS Safety Report 11800467 (Version 1)
Quarter: 2015Q4

REPORT INFORMATION
  Report Type: Spontaneous
  Country: CN (occurrence: CN)
  Receive Date: 20151203
  Receipt Date: 20151203
  Transmission Date: 20160305
  Serious: Yes (Hospitalization, Other)
  Sender: FDA-Public Use
  Company Number: CN-GILEAD-2015-0185988

PATIENT
  Age: 72 Year
  Sex: Female

DRUGS (1)
  1. HEPSERA [Suspect]
     Active Substance: ADEFOVIR DIPIVOXIL
     Indication: CHRONIC HEPATITIS B
     Dosage: UNK
     Route: 065

REACTIONS (18)
  - Fanconi syndrome acquired [Recovered/Resolved]
  - Osteomalacia [Recovered/Resolved]
  - Pain [Unknown]
  - Blood pressure increased [Unknown]
  - Blood alkaline phosphatase increased [Unknown]
  - Blood 25-hydroxycholecalciferol decreased [Unknown]
  - Hypouricaemia [Unknown]
  - Osteoporosis [Unknown]
  - Abasia [Unknown]
  - Nephropathy [Recovered/Resolved]
  - Proteinuria [Unknown]
  - Spinal column stenosis [Unknown]
  - Hypophosphataemia [Unknown]
  - Bone metabolism disorder [Unknown]
  - Renal glycosuria [Unknown]
  - Spinal osteoarthritis [Unknown]
  - Spondylolisthesis [Unknown]
  - Acidosis hyperchloraemic [Unknown]
